FAERS Safety Report 5354838-7 (Version None)
Quarter: 2007Q2

REPORT INFORMATION
  Report Type: 
  Country: None (occurrence: None)
  Receive Date: 20070612
  Receipt Date: 20070604
  Transmission Date: 20071010
  Serious: Yes (Other)
  Sender: FDA-Public Use
  Company Number: GB-PFIZER INC-2007045946

PATIENT
  Age: 52 Year
  Sex: Male

DRUGS (2)
  1. NEURONTIN [Suspect]
     Route: 048
     Dates: start: 20070507, end: 20070521
  2. CO-DYDRAMOL [Concomitant]
     Route: 048

REACTIONS (2)
  - DYSPNOEA [None]
  - THROAT TIGHTNESS [None]
